FAERS Safety Report 5567750-5 (Version None)
Quarter: 2007Q4

REPORT INFORMATION
  Report Type: 
  Country: None (occurrence: None)
  Receive Date: 20071214
  Receipt Date: 20071203
  Transmission Date: 20080405
  Serious: Yes (Other)
  Sender: FDA-Public Use
  Company Number: S07-USA-06186-01

PATIENT
  Age: 30 Year
  Sex: Male

DRUGS (2)
  1. LEXAPRO [Suspect]
     Dosage: 10 MG QD PO
     Route: 048
  2. BENADRYL [Suspect]
     Indication: RASH

REACTIONS (5)
  - DERMATITIS CONTACT [None]
  - DISORIENTATION [None]
  - DRUG INTERACTION [None]
  - RASH [None]
  - ROAD TRAFFIC ACCIDENT [None]
